FAERS Safety Report 10154555 (Version 2)
Quarter: 2014Q2

REPORT INFORMATION
  Report Type: Spontaneous
  Country: US (occurrence: US)
  Receive Date: 20140506
  Receipt Date: 20140529
  Transmission Date: 20141212
  Serious: No
  Sender: FDA-Public Use
  Company Number: US-PFIZER INC-2014122219

PATIENT
  Age: 54 Year
  Sex: Female
  Weight: 113.38 kg

DRUGS (5)
  1. TOVIAZ [Suspect]
     Indication: HYPERTONIC BLADDER
     Dosage: 8 MG, 1X/DAY
     Route: 048
     Dates: start: 20140210
  2. TOVIAZ [Suspect]
     Indication: MIXED INCONTINENCE
  3. GABAPENTIN [Concomitant]
     Dosage: 600 MG, 2X/DAY
  4. QVAR [Concomitant]
     Dosage: UNK
  5. RANITIDINE [Concomitant]
     Dosage: UNK

REACTIONS (4)
  - Dry mouth [Recovered/Resolved]
  - Aptyalism [Unknown]
  - Dry throat [Recovered/Resolved]
  - Lip dry [Unknown]
